FAERS Safety Report 7992540-3 (Version None)
Quarter: 2011Q4

REPORT INFORMATION
  Report Type: 
  Country: None (occurrence: None)
  Receive Date: 20111219
  Receipt Date: 20110704
  Transmission Date: 20120403
  Serious: Yes (Other)
  Sender: FDA-Public Use
  Company Number: PHHY2011TR58317

PATIENT
  Age: 42 Year
  Sex: Male

DRUGS (1)
  1. PSEUDOEPHEDRINE HCL [Suspect]
     Dosage: UNK

REACTIONS (6)
  - ERYTHEMA [None]
  - DRUG ERUPTION [None]
  - BURNING SENSATION [None]
  - PRURITUS [None]
  - SKIN HYPERPIGMENTATION [None]
  - OEDEMA [None]
